FAERS Safety Report 17586538 (Version 1)
Quarter: 2020Q1

REPORT INFORMATION
  Report Type: Report from Study
  Country: US (occurrence: US)
  Receive Date: 20200326
  Receipt Date: 20200326
  Transmission Date: 20200409
  Serious: Yes (Hospitalization, Other)
  Sender: FDA-Public Use
  Company Number: US-GILEAD-2020-0456472

PATIENT
  Age: 52 Year
  Sex: Male

DRUGS (11)
  1. ACYCLOVIR ALPHARMA [ACICLOVIR SODIUM] [Concomitant]
     Active Substance: ACYCLOVIR
  2. METOPROLOL. [Concomitant]
     Active Substance: METOPROLOL
  3. PREDNISONE. [Concomitant]
     Active Substance: PREDNISONE
  4. MEPRON [Concomitant]
     Active Substance: ATOVAQUONE
  5. OMEPRAZOLE. [Concomitant]
     Active Substance: OMEPRAZOLE
  6. WARFARIN [Concomitant]
     Active Substance: WARFARIN
  7. AMLODIPINE [Concomitant]
     Active Substance: AMLODIPINE BESYLATE
  8. NOXAFIL [Concomitant]
     Active Substance: POSACONAZOLE
  9. AZTREONAM LYSINE [Suspect]
     Active Substance: AZTREONAM LYSINE
     Indication: CYSTIC FIBROSIS
     Dosage: 75 MG, TID
     Route: 055
     Dates: start: 20170303
  10. FOLIC ACID. [Concomitant]
     Active Substance: FOLIC ACID
  11. PROGRAF [Concomitant]
     Active Substance: TACROLIMUS

REACTIONS (2)
  - Pneumonia [Unknown]
  - Product dose omission [Unknown]

NARRATIVE: CASE EVENT DATE: 202002
